FAERS Safety Report 20855208 (Version 2)
Quarter: 2022Q3

REPORT INFORMATION
  Report Type: Report from Study
  Country: IN (occurrence: IN)
  Receive Date: 20220520
  Receipt Date: 20220623
  Transmission Date: 20221027
  Serious: Yes (Hospitalization)
  Sender: FDA-Public Use
  Company Number: IN-NOVARTISPH-NVSC2022IN115469

PATIENT
  Age: 50 Year
  Sex: Female

DRUGS (1)
  1. RIBOCICLIB [Suspect]
     Active Substance: RIBOCICLIB
     Indication: Breast cancer metastatic
     Dosage: 600 MG, QD
     Route: 065
     Dates: start: 20210907, end: 20220604

REACTIONS (9)
  - Abdominal discomfort [Unknown]
  - Ascites [Recovering/Resolving]
  - Protein total decreased [Recovering/Resolving]
  - Blood pressure abnormal [Recovering/Resolving]
  - General physical health deterioration [Not Recovered/Not Resolved]
  - Anaemia [Recovering/Resolving]
  - Dyspnoea [Recovered/Resolved]
  - Blood calcium decreased [Recovering/Resolving]
  - Drug ineffective [Unknown]

NARRATIVE: CASE EVENT DATE: 20220510
